FAERS Safety Report 6268740-X (Version None)
Quarter: 2009Q3

REPORT INFORMATION
  Report Type: 
  Country: None (occurrence: None)
  Receive Date: 20090715
  Receipt Date: 20090707
  Transmission Date: 20100115
  Serious: Yes (Other)
  Sender: FDA-Public Use
  Company Number: FR-AMGEN-US351037

PATIENT
  Sex: Female

DRUGS (1)
  1. ENBREL [Suspect]
     Indication: ANKYLOSING SPONDYLITIS
     Route: 058
     Dates: start: 20090323, end: 20090501

REACTIONS (15)
  - ANKYLOSING SPONDYLITIS [None]
  - CHONDROPATHY [None]
  - CONDITION AGGRAVATED [None]
  - FACE OEDEMA [None]
  - HYPERHIDROSIS [None]
  - INFLUENZA LIKE ILLNESS [None]
  - INJECTION SITE ERYTHEMA [None]
  - INJECTION SITE IRRITATION [None]
  - INJECTION SITE RECALL REACTION [None]
  - OEDEMA PERIPHERAL [None]
  - ORAL HERPES [None]
  - SKIN DISCOLOURATION [None]
  - SKIN ODOUR ABNORMAL [None]
  - SKIN PLAQUE [None]
  - VEIN DISCOLOURATION [None]
